FAERS Safety Report 6493043-8 (Version None)
Quarter: 2009Q4

REPORT INFORMATION
  Report Type: 
  Country: None (occurrence: None)
  Receive Date: 20091214
  Receipt Date: 20091204
  Transmission Date: 20100525
  Serious: Yes (Other)
  Sender: FDA-Public Use
  Company Number: GXKR2009AT13263

PATIENT
  Age: 3 Year
  Sex: Female
  Weight: 15 kg

DRUGS (3)
  1. OSPEN (NGX) [Suspect]
     Indication: ACUTE TONSILLITIS
     Dosage: 5 ML, TID
     Dates: start: 20091114
  2. TAMIFLU [Interacting]
     Indication: INFLUENZA
     Dosage: 2.5 ML, BID
     Route: 048
     Dates: start: 20091114, end: 20091117
  3. NUREFLEX [Concomitant]
     Dosage: AS NEEDED
     Route: 048

REACTIONS (4)
  - AGGRESSION [None]
  - DRUG INTERACTION [None]
  - NAUSEA [None]
  - VOMITING [None]
